FAERS Safety Report 6505770-4 (Version None)
Quarter: 2009Q4

REPORT INFORMATION
  Report Type: 
  Country: None (occurrence: None)
  Receive Date: 20091218
  Receipt Date: 20091207
  Transmission Date: 20100525
  Serious: Yes (Other)
  Sender: FDA-Public Use
  Company Number: NL-PFIZER INC-2009287739

PATIENT
  Age: 72 Year
  Sex: Male

DRUGS (1)
  1. SUTENT [Suspect]
     Dosage: UNK
     Dates: start: 20090916, end: 20091007

REACTIONS (1)
  - PNEUMONITIS [None]
